FAERS Safety Report 10640379 (Version 1)
Quarter: 2014Q4

REPORT INFORMATION
  Report Type: Spontaneous
  Country: US (occurrence: None)
  Receive Date: 20141205
  Receipt Date: 20141205
  Transmission Date: 20150529
  Serious: Yes (Other)
  Sender: FDA-Public Use
  Company Number: None

PATIENT
  Age: 62 Year
  Sex: Female
  Weight: 147 kg

DRUGS (1)
  1. HUMULIN R U-500 [Suspect]
     Active Substance: INSULIN HUMAN
     Indication: DIABETES MELLITUS
     Dosage: 90 UNITS
     Route: 058

REACTIONS (3)
  - Incorrect dose administered [None]
  - Blood glucose increased [None]
  - Underdose [None]

NARRATIVE: CASE EVENT DATE: 20141127
